FAERS Safety Report 9592700 (Version 1)
Quarter: 2013Q3

REPORT INFORMATION
  Report Type: Spontaneous
  Country: US (occurrence: None)
  Receive Date: 20130930
  Receipt Date: 20130930
  Transmission Date: 20140515
  Serious: Yes (Other)
  Sender: FDA-Public Use
  Company Number: 1000045880

PATIENT
  Age: 64 Year
  Sex: Female

DRUGS (8)
  1. LINZESS [Suspect]
     Indication: CONSTIPATION
     Dosage: 145 MCG, 1 IN 1 D
     Route: 048
     Dates: start: 201302
  2. LINZESS [Suspect]
     Indication: CONSTIPATION
     Dosage: 145 MCG, 1 IN 1 D
     Route: 048
     Dates: start: 201302
  3. CITRUCEL [Suspect]
     Indication: IRRITABLE BOWEL SYNDROME
     Dosage: DAILY (DAILY)
  4. CITRUCEL [Suspect]
     Indication: CONSTIPATION
     Dosage: DAILY (DAILY)
  5. SYNTHROID [Concomitant]
  6. FLONASE [Concomitant]
  7. AMBIEN [Concomitant]
  8. FISH OIL [Concomitant]

REACTIONS (1)
  - Drug ineffective [None]
